FAERS Safety Report 6400917-2 (Version None)
Quarter: 2009Q4

REPORT INFORMATION
  Report Type: 
  Country: None (occurrence: None)
  Receive Date: 20091009
  Receipt Date: 20091006
  Transmission Date: 20100525
  Serious: Yes (Hospitalization, Other)
  Sender: FDA-Public Use
  Company Number: 2009SP025230

PATIENT
  Age: 59 Year
  Sex: Female

DRUGS (4)
  1. PEG-INTRON [Suspect]
     Indication: HEPATITIS C
     Dosage: 150 MCG;QW;SC
     Route: 058
     Dates: start: 20081114
  2. RIBAVIRIN [Suspect]
     Indication: HEPATITIS C
     Dosage: 1400 MG;QD;PO : 1200 MG;QD;PO
     Route: 048
     Dates: start: 20081114
  3. HUMOLOG INSULIN [Concomitant]
  4. INSULIN [Concomitant]

REACTIONS (14)
  - ABDOMINAL PAIN UPPER [None]
  - CHILLS [None]
  - DEHYDRATION [None]
  - DIARRHOEA [None]
  - DYSPEPSIA [None]
  - ECONOMIC PROBLEM [None]
  - INCORRECT STORAGE OF DRUG [None]
  - LIQUID PRODUCT PHYSICAL ISSUE [None]
  - MALAISE [None]
  - MYALGIA [None]
  - NAUSEA [None]
  - PRODUCT QUALITY ISSUE [None]
  - PYREXIA [None]
  - VOMITING [None]
